FAERS Safety Report 9471413 (Version 1)
Quarter: 2013Q3

REPORT INFORMATION
  Report Type: Spontaneous
  Country: LB (occurrence: LB)
  Receive Date: 20130822
  Receipt Date: 20130822
  Transmission Date: 20140515
  Serious: Yes (Other)
  Sender: FDA-Public Use
  Company Number: LB-ELI_LILLY_AND_COMPANY-LB201308005969

PATIENT
  Sex: Male

DRUGS (1)
  1. PEMETREXED [Suspect]
     Dosage: MAINTENANCE

REACTIONS (2)
  - Multi-organ failure [Unknown]
  - Skin exfoliation [Unknown]
